FAERS Safety Report 4316392-8 (Version None)
Quarter: 2004Q1

REPORT INFORMATION
  Report Type: 
  Country: None (occurrence: None)
  Receive Date: 20040311
  Receipt Date: 20040225
  Transmission Date: 20041129
  Serious: No
  Sender: FDA-Public Use
  Company Number: A02200400655

PATIENT
  Age: 55 Year
  Sex: Female

DRUGS (7)
  1. ELOXATIN [Suspect]
     Indication: CHEMOTHERAPY
     Route: 042
     Dates: start: 20040203, end: 20040203
  2. FLUOROURACIL [Concomitant]
  3. FOLINIC ACID [Concomitant]
  4. OMEPRAZOLE [Concomitant]
  5. MOTILIUM [Concomitant]
  6. STILNOX (ZOLPIDEM) [Concomitant]
  7. PREDNISOLONE [Concomitant]

REACTIONS (1)
  - HEPATOCELLULAR DAMAGE [None]
